FAERS Safety Report 14730138 (Version 2)
Quarter: 2018Q2

REPORT INFORMATION
  Report Type: Report from Study
  Country: US (occurrence: US)
  Receive Date: 20180406
  Receipt Date: 20180409
  Transmission Date: 20180711
  Serious: Yes (Death)
  Sender: FDA-Public Use
  Company Number: US-TARO-2018TAR00256

PATIENT
  Age: 62 Year
  Sex: Female
  Weight: 56.69 kg

DRUGS (7)
  1. BLINDED VEHICLE FOAM [Suspect]
     Active Substance: INVESTIGATIONAL PRODUCT
     Indication: ROSACEA
     Dosage: 50 G, 2X/DAY
     Route: 061
     Dates: start: 20180201
  2. LAMICTAL [Concomitant]
     Active Substance: LAMOTRIGINE
     Dosage: 200 MG, 1X/DAY
     Route: 048
     Dates: start: 2007
  3. BLINDED AZELAIC ACID FOAM 15% [Suspect]
     Active Substance: AZELAIC ACID
     Indication: ROSACEA
     Dosage: 50 G, 2X/DAY
     Route: 061
     Dates: start: 20180201
  4. LASIX [Concomitant]
     Active Substance: FUROSEMIDE
     Dosage: 40 MG, 1X/DAY
     Route: 048
     Dates: start: 20171212
  5. METOPROLOL. [Concomitant]
     Active Substance: METOPROLOL
     Dosage: 25 MG, 2X/DAY
     Route: 048
     Dates: start: 20171212
  6. FINACEA [Suspect]
     Active Substance: AZELAIC ACID
     Indication: ROSACEA
     Dosage: 50 G, 2X/DAY
     Route: 061
     Dates: start: 20180201
  7. LISINOPRIL. [Concomitant]
     Active Substance: LISINOPRIL
     Dosage: 40 MG, 1X/DAY
     Route: 048
     Dates: start: 2016

REACTIONS (3)
  - Myocardial infarction [None]
  - Cerebrovascular accident [Fatal]
  - Dysgeusia [None]

NARRATIVE: CASE EVENT DATE: 20180326
